FAERS Safety Report 15128402 (Version 2)
Quarter: 2018Q3

REPORT INFORMATION
  Report Type: Spontaneous
  Country: DO (occurrence: DO)
  Receive Date: 20180711
  Receipt Date: 20180920
  Transmission Date: 20181010
  Serious: Yes (Other)
  Sender: FDA-Public Use
  Company Number: DO-ABBVIE-18P-279-2412589-00

PATIENT

DRUGS (1)
  1. EPIVAL [Suspect]
     Active Substance: DIVALPROEX SODIUM
     Indication: SEIZURE
     Route: 065

REACTIONS (4)
  - Product quality issue [Unknown]
  - Suspected counterfeit product [Unknown]
  - Seizure [Unknown]
  - Drug ineffective [Unknown]
